FAERS Safety Report 5940315-9 (Version None)
Quarter: 2008Q4

REPORT INFORMATION
  Report Type: 
  Country: None (occurrence: None)
  Receive Date: 20081104
  Receipt Date: 20081031
  Transmission Date: 20090506
  Serious: Yes (Life-Threatening, Hospitalization, Other)
  Sender: FDA-Public Use
  Company Number: B0528438A

PATIENT
  Age: 69 Year
  Sex: Female
  Weight: 37 kg

DRUGS (37)
  1. ALKERAN [Suspect]
     Indication: CORD BLOOD TRANSPLANT THERAPY
     Dosage: 80MGM2 PER DAY
     Route: 042
     Dates: start: 20070417, end: 20070417
  2. FLUDARA [Suspect]
     Indication: CORD BLOOD TRANSPLANT THERAPY
     Dosage: 25MGM2 PER DAY
     Route: 042
     Dates: start: 20080412, end: 20080416
  3. UNKNOWN DRUG [Concomitant]
     Route: 065
     Dates: start: 20070420, end: 20070524
  4. CYCLOSPORINE [Concomitant]
     Indication: IMMUNOSUPPRESSION
     Route: 065
     Dates: start: 20070504, end: 20070516
  5. TACROLIMUS [Concomitant]
     Indication: IMMUNOSUPPRESSION
     Route: 065
     Dates: start: 20070418, end: 20070503
  6. UNKNOWN MEDICATION [Concomitant]
     Dosage: 1G PER DAY
     Route: 042
     Dates: start: 20080401, end: 20080401
  7. HEPARIN LOCK-FLUSH [Concomitant]
     Dosage: 1IU3 PER DAY
     Dates: start: 20070401, end: 20070401
  8. GRAN [Concomitant]
     Dosage: 75MCG PER DAY
     Route: 058
     Dates: start: 20070402, end: 20070404
  9. GRAN [Concomitant]
     Dosage: 75MCG PER DAY
     Route: 058
     Dates: start: 20070409, end: 20070411
  10. BENAMBAX [Concomitant]
     Dosage: 300MG PER DAY
     Route: 055
     Dates: start: 20070409, end: 20070409
  11. SOLDEM 3A [Concomitant]
     Dosage: 500ML PER DAY
     Route: 042
     Dates: start: 20070412, end: 20070412
  12. SOLDEM 3A [Concomitant]
     Dosage: 500ML TWICE PER DAY
     Route: 042
     Dates: start: 20070413, end: 20070419
  13. SOLDEM 3A [Concomitant]
     Dosage: 500ML PER DAY
     Route: 042
     Dates: start: 20070420, end: 20070420
  14. KYTRIL [Concomitant]
     Dosage: 3MG PER DAY
     Route: 042
     Dates: start: 20070412, end: 20070416
  15. KYTRIL [Concomitant]
     Dosage: 3MG TWICE PER DAY
     Route: 042
     Dates: start: 20070418, end: 20070418
  16. FUNGUARD [Concomitant]
     Dosage: 50MG PER DAY
     Route: 042
     Dates: start: 20070414, end: 20070429
  17. NASEA [Concomitant]
     Dosage: .3MG TWICE PER DAY
     Route: 042
     Dates: start: 20070417, end: 20070417
  18. SOLU-CORTEF [Concomitant]
     Dosage: 100MG TWICE PER DAY
     Route: 042
     Dates: start: 20070418, end: 20070418
  19. PROGRAF [Concomitant]
     Dosage: 1MG PER DAY
     Route: 042
     Dates: start: 20070418, end: 20070423
  20. RABEPRAZOLE SODIUM [Concomitant]
     Dosage: 10MG PER DAY
     Route: 048
     Dates: start: 20070401, end: 20070421
  21. RABEPRAZOLE SODIUM [Concomitant]
     Dosage: 20MG PER DAY
     Route: 048
     Dates: start: 20070422, end: 20070423
  22. PREDONINE [Concomitant]
     Dosage: 20MG TWICE PER DAY
     Route: 048
     Dates: start: 20070401, end: 20070406
  23. PREDONINE [Concomitant]
     Dosage: 10MG TWICE PER DAY
     Route: 048
     Dates: start: 20070407, end: 20070409
  24. PREDONINE [Concomitant]
     Dosage: 5MG TWICE PER DAY
     Route: 048
     Dates: start: 20070410, end: 20070411
  25. PREDONINE [Concomitant]
     Dosage: 10MG TWICE PER DAY
     Route: 048
     Dates: start: 20070413, end: 20070416
  26. URSO 250 [Concomitant]
     Dosage: 200MG THREE TIMES PER DAY
     Route: 048
     Dates: start: 20070410
  27. MAGNESIUM OXIDE [Concomitant]
     Dosage: .67G THREE TIMES PER DAY
     Route: 048
     Dates: start: 20070403, end: 20070409
  28. MAGNESIUM OXIDE [Concomitant]
     Dosage: .67G THREE TIMES PER DAY
     Route: 048
     Dates: start: 20070414, end: 20070416
  29. MAGNESIUM OXIDE [Concomitant]
     Dosage: .67G THREE TIMES PER DAY
     Route: 048
     Dates: start: 20070418, end: 20070420
  30. BIOFERMIN R [Concomitant]
     Dosage: 6MG THREE TIMES PER DAY
     Route: 048
     Dates: start: 20070410, end: 20070430
  31. LAC B [Concomitant]
     Dosage: 1G THREE TIMES PER DAY
     Route: 048
     Dates: start: 20070421, end: 20070501
  32. CIPROXAN [Concomitant]
     Dosage: 200MG THREE TIMES PER DAY
     Route: 048
     Dates: start: 20070406
  33. ALLOID G [Concomitant]
     Dosage: 20ML THREE TIMES PER DAY
     Route: 048
     Dates: start: 20070401, end: 20070401
  34. VANCOMYCIN HYDROCHLORIDE [Concomitant]
     Dosage: 500MG FOUR TIMES PER DAY
     Route: 048
     Dates: start: 20070421
  35. ZOVIRAX [Concomitant]
     Dosage: .5G FIVE TIMES PER DAY
     Route: 048
     Dates: start: 20070416, end: 20070416
  36. ZOVIRAX [Concomitant]
     Dosage: 1G FIVE TIMES PER DAY
     Route: 048
     Dates: start: 20070417, end: 20070417
  37. ZOVIRAX [Concomitant]
     Dosage: .5G FIVE TIMES PER DAY
     Route: 048
     Dates: start: 20070418, end: 20070423

REACTIONS (22)
  - ABDOMINAL PAIN [None]
  - ALTERED STATE OF CONSCIOUSNESS [None]
  - ANAL ABSCESS [None]
  - ATRIAL FIBRILLATION [None]
  - CELLULITIS [None]
  - CEREBRAL HAEMORRHAGE [None]
  - CHEYNE-STOKES RESPIRATION [None]
  - CONVULSION [None]
  - DEMYELINATION [None]
  - DIARRHOEA [None]
  - DISSEMINATED INTRAVASCULAR COAGULATION [None]
  - ELECTROENCEPHALOGRAM ABNORMAL [None]
  - ENCEPHALOPATHY [None]
  - HERPES ZOSTER DISSEMINATED [None]
  - INFECTION [None]
  - INFECTIVE SPONDYLITIS [None]
  - MUSCULAR WEAKNESS [None]
  - NEUROPATHY PERIPHERAL [None]
  - QUADRIPLEGIA [None]
  - STAPHYLOCOCCAL SEPSIS [None]
  - STOMATITIS [None]
  - VOMITING [None]
